FAERS Safety Report 8842321 (Version 1)
Quarter: 2012Q4

REPORT INFORMATION
  Report Type: 
  Country: US (occurrence: US)
  Receive Date: 20121016
  Receipt Date: 20121016
  Transmission Date: 20130627
  Serious: No
  Sender: FDA-Public Use
  Company Number: US-009507513-1210USA003641

PATIENT
  Sex: Female

DRUGS (2)
  1. GANIRELIX ACETATE INJECTION [Suspect]
     Indication: OVULATION INDUCTION
     Dosage: 250 Microgram, qd, for 1-3 days
     Route: 058
  2. GONADOTROPIN, CHORIONIC [Concomitant]
     Dosage: either 5000 or 10,000 IU HCG was administered
     Route: 030

REACTIONS (1)
  - Drug ineffective [Unknown]
